FAERS Safety Report 10622633 (Version 1)
Quarter: 2014Q4

REPORT INFORMATION
  Report Type: Spontaneous
  Country: US (occurrence: None)
  Receive Date: 20141202
  Receipt Date: 20141202
  Transmission Date: 20150529
  Serious: No
  Sender: FDA-Public Use
  Company Number: None

PATIENT
  Age: 72 Year
  Sex: Male
  Weight: 103.2 kg

DRUGS (1)
  1. AMIODARONE [Suspect]
     Active Substance: AMIODARONE
     Indication: ATRIAL FIBRILLATION
     Route: 048
     Dates: start: 20091021, end: 20140807

REACTIONS (4)
  - Toxicity to various agents [None]
  - Pulmonary fibrosis [None]
  - Interstitial lung disease [None]
  - Emphysema [None]

NARRATIVE: CASE EVENT DATE: 20140804
